FAERS Safety Report 9245594 (Version 1)
Quarter: 2013Q1

REPORT INFORMATION
  Report Type: Spontaneous
  Country: US (occurrence: None)
  Receive Date: 20121130
  Receipt Date: 20121130
  Transmission Date: 20140127
  Serious: Yes (Other)
  Sender: FDA-Public Use
  Company Number: 348518

PATIENT
  Age: 74 Year
  Sex: Female
  Weight: 73.9 kg

DRUGS (2)
  1. NOVOLOG MIX 70/30 FLEXPEN [Suspect]
     Indication: TYPE 2 DIABETES MELLITUS
     Dosage: 36 U, BID, SUBCUTANEOUS
     Dates: start: 2010, end: 20120326
  2. NOVOFINE 30 (NEEDLE) [Concomitant]

REACTIONS (3)
  - Hypoglycaemic unconsciousness [None]
  - Blood glucose fluctuation [None]
  - Hypoglycaemia [None]
